FAERS Safety Report 6556108-8 (Version None)
Quarter: 2010Q1

REPORT INFORMATION
  Report Type: 
  Country: None (occurrence: None)
  Receive Date: 20100128
  Receipt Date: 20090413
  Transmission Date: 20100710
  Serious: No
  Sender: FDA-Public Use
  Company Number: US-TEVA-191376USA

PATIENT
  Sex: Female

DRUGS (2)
  1. COPAXONE [Suspect]
     Indication: MULTIPLE SCLEROSIS
     Route: 058
     Dates: start: 20070813
  2. DULOXETINE HYDROCHLORIDE [Concomitant]

REACTIONS (3)
  - HEPATIC STEATOSIS [None]
  - LYMPHADENOPATHY [None]
  - PANCREATIC DISORDER [None]
